FAERS Safety Report 5061990-X (Version None)
Quarter: 2006Q3

REPORT INFORMATION
  Report Type: 
  Country: None (occurrence: None)
  Receive Date: 20060703
  Receipt Date: 20051025
  Transmission Date: 20061208
  Serious: No
  Sender: FDA-Public Use
  Company Number: 2005S1010519

PATIENT
  Age: 45 Year
  Sex: Female

DRUGS (7)
  1. CLOZAPINE [Suspect]
     Indication: SCHIZOAFFECTIVE DISORDER
     Dosage: 400 MG; HS; PO
     Route: 048
     Dates: start: 20030401
  2. DEXAMETHASONE SULFATE [Concomitant]
  3. AMFETAMINE SULFATE/DEXAMFETAMINE [Concomitant]
  4. SACCHARATE/AMFETAMINE ASPARTATE [Concomitant]
  5. VALPROATE SODIUM [Concomitant]
  6. HALOPERIDOL DECANOATE [Concomitant]
  7. CLONAZEPAM [Concomitant]

REACTIONS (1)
  - GRANULOCYTOPENIA [None]
